FAERS Safety Report 8518272-0 (Version None)
Quarter: 2012Q3

REPORT INFORMATION
  Report Type: 
  Country: None (occurrence: None)
  Receive Date: 20120718
  Receipt Date: 20111219
  Transmission Date: 20120928
  Serious: No
  Sender: FDA-Public Use
  Company Number: US-BRISTOL-MYERS SQUIBB COMPANY-16301400

PATIENT
  Sex: Female

DRUGS (8)
  1. LOSARTAN POTASSIUM [Concomitant]
  2. LOVASTATIN [Concomitant]
  3. VERAPAMIL [Concomitant]
  4. TIPRANAVIR [Concomitant]
  5. COUMADIN [Suspect]
     Indication: ATRIAL FIBRILLATION
  6. LEVOTHYROXINE SODIUM [Concomitant]
  7. ISOSORBIDE [Concomitant]
  8. FUROSEMIDE [Concomitant]

REACTIONS (1)
  - INTERNATIONAL NORMALISED RATIO DECREASED [None]
